FAERS Safety Report 23527167 (Version 1)
Quarter: 2024Q1

REPORT INFORMATION
  Report Type: Spontaneous
  Country: EU (occurrence: EU)
  Receive Date: 20240215
  Receipt Date: 20240215
  Transmission Date: 20240409
  Serious: Yes (Other)
  Sender: FDA-Public Use
  Company Number: None

PATIENT
  Weight: 70 kg

DRUGS (3)
  1. ARTICAINE\EPINEPHRINE [Suspect]
     Active Substance: ARTICAINE\EPINEPHRINE
     Indication: Anaesthesia
     Route: 050
     Dates: start: 2018, end: 2018
  2. LIDOCAINE [Suspect]
     Active Substance: LIDOCAINE
     Indication: Anaesthesia
     Dates: start: 2018, end: 2021
  3. EPINEPHRINE [Suspect]
     Active Substance: EPINEPHRINE
     Route: 065
     Dates: start: 2021

REACTIONS (9)
  - Loss of consciousness [Unknown]
  - Syncope [Not Recovered/Not Resolved]
  - General physical health deterioration [Unknown]
  - General physical health deterioration [Not Recovered/Not Resolved]
  - Vomiting [Not Recovered/Not Resolved]
  - Chills [Not Recovered/Not Resolved]
  - Nausea [Not Recovered/Not Resolved]
  - Palpitations [Not Recovered/Not Resolved]
  - Respiration abnormal [Not Recovered/Not Resolved]

NARRATIVE: CASE EVENT DATE: 20180101
